APPROVED DRUG PRODUCT: PROTAMINE SULFATE
Active Ingredient: PROTAMINE SULFATE
Strength: 250MG/VIAL
Dosage Form/Route: POWDER;INTRAVENOUS
Application: N007413 | Product #002
Applicant: PHARMACIA AND UPJOHN CO
Approved: Aug 2, 1984 | RLD: No | RS: No | Type: DISCN